FAERS Safety Report 8120881-8 (Version None)
Quarter: 2012Q1

REPORT INFORMATION
  Report Type: 
  Country: None (occurrence: None)
  Receive Date: 20120203
  Receipt Date: 20120126
  Transmission Date: 20120608
  Serious: Yes (Other)
  Sender: FDA-Public Use
  Company Number: 1000020614

PATIENT
  Age: 32 Year
  Sex: Female
  Weight: 69 kg

DRUGS (4)
  1. SAVELLA [Suspect]
     Indication: FIBROMYALGIA
     Dosage: 100 MG,ORAL
     Route: 048
  2. PRENATAL VITAMIN WITH FOLIC ACID(VITAMIN, FOLIC ACID) (VITAMIN, FOLIC [Concomitant]
  3. VITAMIN B-12 (CYANOCOBALAMIN) (INJECTION) (CYANOCOBALAMIN) [Concomitant]
  4. PROZAC [Concomitant]

REACTIONS (3)
  - HELLP SYNDROME [None]
  - PREGNANCY [None]
  - MATERNAL EXPOSURE DURING PREGNANCY [None]
